FAERS Safety Report 8130148-X (Version None)
Quarter: 2012Q1

REPORT INFORMATION
  Report Type: 
  Country: None (occurrence: None)
  Receive Date: 20120210
  Receipt Date: 20120206
  Transmission Date: 20120608
  Serious: Yes (Death)
  Sender: FDA-Public Use
  Company Number: CA-B.I. PHARMACEUTICALS,INC./RIDGEFIELD-2012-CN-00172CN

PATIENT
  Age: 43 Year
  Sex: Male

DRUGS (2)
  1. TIPRANAVIR + RITONAVIR CO-ADMIN [Suspect]
     Dosage: 1000 MG
     Route: 048
  2. NORVIR [Suspect]
     Dosage: 250 MG
     Route: 048

REACTIONS (1)
  - DEATH [None]
